FAERS Safety Report 10451486 (Version 1)
Quarter: 2014Q3

REPORT INFORMATION
  Report Type: Spontaneous
  Country: TR (occurrence: TR)
  Receive Date: 20140912
  Receipt Date: 20140912
  Transmission Date: 20150326
  Serious: Yes (Other)
  Sender: FDA-Public Use
  Company Number: TR-SA-2014SA123124

PATIENT
  Age: 10 Year

DRUGS (3)
  1. FUROSEMIDE. [Suspect]
     Active Substance: FUROSEMIDE
     Indication: GLOMERULONEPHRITIS PROLIFERATIVE
     Dosage: -DOSE: 250-500 MG OR 1 MG/KG DAILY.
     Route: 065
  2. PREDNISONE. [Concomitant]
     Active Substance: PREDNISONE
     Dosage: IN DIVIDED DOSES
  3. ALBUMIN [Concomitant]
     Active Substance: ALBUMIN (HUMAN)
     Dosage: 25% IN  A DOSE OF 0.5  TO 1 G/KG UP TO 25 G

REACTIONS (3)
  - Hypercalciuria [Recovered/Resolved]
  - Nephrocalcinosis [Recovered/Resolved]
  - Urine calcium/creatinine ratio increased [Recovered/Resolved]
